FAERS Safety Report 9651983 (Version 7)
Quarter: 2014Q2

REPORT INFORMATION
  Report Type: Spontaneous
  Country: BR (occurrence: BR)
  Receive Date: 20131029
  Receipt Date: 20140618
  Transmission Date: 20141212
  Serious: Yes (Hospitalization, Other)
  Sender: FDA-Public Use
  Company Number: BR-SA-2013SA108581

PATIENT
  Age: 66 Year
  Sex: Female
  Weight: 58 kg

DRUGS (10)
  1. LANTUS [Suspect]
     Indication: TYPE 2 DIABETES MELLITUS
     Dosage: ACCORDING TO BLOOD GLUCOSE LEVEL
     Route: 058
     Dates: start: 2008
  2. LANTUS [Suspect]
     Indication: TYPE 2 DIABETES MELLITUS
     Route: 058
  3. LANTUS [Suspect]
     Indication: TYPE 2 DIABETES MELLITUS
     Dosage: DOSE: ACCORDING TO BLOOD GLUCOSE LEVEL IN NIGHT
     Route: 058
  4. LANTUS [Suspect]
     Indication: TYPE 2 DIABETES MELLITUS
     Route: 058
  5. CLIKSTAR [Concomitant]
     Indication: DEVICE THERAPY
  6. METFORMIN [Concomitant]
     Indication: TYPE 2 DIABETES MELLITUS
     Dosage: STRENGTH: 750 MG/TAB
     Route: 048
     Dates: start: 2007
  7. GALVUS MET [Concomitant]
     Indication: TYPE 2 DIABETES MELLITUS
     Dosage: STRENGTH: 50 + 580 MG/ TAB
     Route: 048
     Dates: start: 2011
  8. DIOVAN HCT [Concomitant]
     Indication: HYPERTENSION
     Dosage: STRENGTH; 160 + 12.5 MG/ TAB
     Route: 048
     Dates: start: 2009
  9. METHYLDOPA [Concomitant]
     Route: 048
  10. ATENOLOL [Concomitant]
     Indication: HYPERTENSION
     Route: 048

REACTIONS (9)
  - Breast cancer [Recovering/Resolving]
  - Infection [Unknown]
  - Surgery [Recovering/Resolving]
  - Blood glucose abnormal [Recovered/Resolved]
  - Dry mouth [Recovered/Resolved]
  - Thirst [Recovered/Resolved]
  - Tremor [Recovered/Resolved]
  - Hunger [Recovered/Resolved]
  - Pain [Recovering/Resolving]
